FAERS Safety Report 12238968 (Version 2)
Quarter: 2016Q2

REPORT INFORMATION
  Report Type: Report from Study
  Country: PL (occurrence: PL)
  Receive Date: 20160405
  Receipt Date: 20160502
  Transmission Date: 20160815
  Serious: Yes (Life-Threatening, Hospitalization)
  Sender: FDA-Public Use
  Company Number: PL-JNJFOC-20160402387

PATIENT
  Age: 82 Year
  Sex: Male
  Weight: 70 kg

DRUGS (1)
  1. IBRUTINIB [Suspect]
     Active Substance: IBRUTINIB
     Indication: MANTLE CELL LYMPHOMA
     Route: 048
     Dates: start: 20150112

REACTIONS (1)
  - Subdural haematoma [Recovering/Resolving]

NARRATIVE: CASE EVENT DATE: 20151022
